FAERS Safety Report 15799849 (Version 1)
Quarter: 2019Q1

REPORT INFORMATION
  Report Type: Report from Study
  Country: US (occurrence: US)
  Receive Date: 20190108
  Receipt Date: 20190108
  Transmission Date: 20190417
  Serious: Yes (Hospitalization)
  Sender: FDA-Public Use
  Company Number: US-MYLANLABS-2019M1000911

PATIENT
  Age: 24 Year
  Sex: Female

DRUGS (1)
  1. BUPRENORPHINE HYDROCHLORIDE/NALOXONE HYDROCHLORIDE [Suspect]
     Active Substance: BUPRENORPHINE HYDROCHLORIDE\NALOXONE HYDROCHLORIDE
     Indication: PRODUCT USED FOR UNKNOWN INDICATION
     Dosage: INADVERTENT INTRA-ARTERIAL INJECTION OF SUBLINGUAL FORM OF BUPRENORPHINE/NALOXONE
     Route: 013

REACTIONS (5)
  - Dry gangrene [Recovered/Resolved with Sequelae]
  - Incorrect route of product administration [Recovering/Resolving]
  - Drug abuse [Recovering/Resolving]
  - Peripheral ischaemia [Recovering/Resolving]
  - Tissue injury [Recovering/Resolving]
